FAERS Safety Report 12847263 (Version 1)
Quarter: 2016Q4

REPORT INFORMATION
  Report Type: Spontaneous
  Country: US (occurrence: US)
  Receive Date: 20161014
  Receipt Date: 20161014
  Transmission Date: 20170207
  Serious: No
  Sender: FDA-Public Use
  Company Number: US-GLAXOSMITHKLINE-US2016147491

PATIENT
  Sex: Male

DRUGS (2)
  1. NICODERM CQ [Suspect]
     Active Substance: NICOTINE
     Dosage: UNK
     Dates: start: 20161006
  2. NICODERM CQ [Suspect]
     Active Substance: NICOTINE
     Indication: SMOKING CESSATION THERAPY
     Dosage: 21 MG, UNK
     Dates: end: 20161004

REACTIONS (3)
  - Application site dryness [Not Recovered/Not Resolved]
  - Application site pruritus [Not Recovered/Not Resolved]
  - Application site exfoliation [Not Recovered/Not Resolved]
